FAERS Safety Report 10751359 (Version 1)
Quarter: 2015Q1

REPORT INFORMATION
  Report Type: Spontaneous
  Country: FR (occurrence: FR)
  Receive Date: 20150130
  Receipt Date: 20150130
  Transmission Date: 20150721
  Serious: Yes (Other)
  Sender: FDA-Public Use
  Company Number: FR-EISAI MEDICAL RESEARCH-EC-2015-003403

PATIENT
  Age: 21 Year
  Sex: Female

DRUGS (2)
  1. INOVELON [Suspect]
     Active Substance: RUFINAMIDE
     Indication: LENNOX-GASTAUT SYNDROME
     Dosage: UNKNOWN
     Route: 048
  2. INOVELON [Suspect]
     Active Substance: RUFINAMIDE
     Dosage: UNKNOWN
     Route: 048

REACTIONS (1)
  - Decreased appetite [Recovered/Resolved]
